FAERS Safety Report 5807323-X (Version None)
Quarter: 2008Q3

REPORT INFORMATION
  Report Type: 
  Country: None (occurrence: None)
  Receive Date: 20080711
  Receipt Date: 20080702
  Transmission Date: 20090109
  Serious: Yes (Hospitalization)
  Sender: FDA-Public Use
  Company Number: ES-ELI_LILLY_AND_COMPANY-ES200807000614

PATIENT
  Age: 85 Year
  Sex: Female

DRUGS (2)
  1. FORTEO [Suspect]
     Indication: OSTEOPOROSIS
     Dosage: 20 UG, UNKNOWN
     Route: 058
     Dates: start: 20070901, end: 20080529
  2. DIGOXIN [Concomitant]
     Dosage: UNK, UNKNOWN
     Route: 065
     Dates: end: 20080529

REACTIONS (2)
  - ACUTE MYOCARDIAL INFARCTION [None]
  - HEART VALVE CALCIFICATION [None]
